FAERS Safety Report 24011385 (Version 2)
Quarter: 2024Q2

REPORT INFORMATION
  Report Type: Spontaneous
  Country: SE (occurrence: None)
  Receive Date: 20240625
  Receipt Date: 20240628
  Transmission Date: 20240716
  Serious: Yes (Death, Life-Threatening)
  Sender: FDA-Public Use
  Company Number: 2024A146572

PATIENT
  Age: 79 Year
  Sex: Male

DRUGS (2)
  1. ACALABRUTINIB [Suspect]
     Active Substance: ACALABRUTINIB
     Indication: Mantle cell lymphoma
     Route: 048
  2. RITUXIMAB [Concomitant]
     Active Substance: RITUXIMAB
     Indication: Mantle cell lymphoma
     Dosage: EVERY FOUR WEEKS

REACTIONS (6)
  - Aplastic anaemia [Fatal]
  - Thrombocytopenia [Fatal]
  - Septic shock [Fatal]
  - Hepatic enzyme increased [Fatal]
  - Pancytopenia [Fatal]
  - Neutropenic infection [Fatal]
